FAERS Safety Report 17654759 (Version 3)
Quarter: 2021Q2

REPORT INFORMATION
  Report Type: Other
  Country: CA (occurrence: CA)
  Receive Date: 20200410
  Receipt Date: 20210503
  Transmission Date: 20210716
  Serious: Yes (Other)
  Sender: FDA-Public Use
  Company Number: CA-APOTEX-2020AP009674

PATIENT
  Age: 45 Year
  Sex: Female

DRUGS (7)
  1. PREDNISONE. [Suspect]
     Active Substance: PREDNISONE
     Indication: ALLOGENIC STEM CELL TRANSPLANTATION
     Dosage: UNK
     Route: 065
  2. PREDNISONE. [Suspect]
     Active Substance: PREDNISONE
     Indication: IMMUNOSUPPRESSANT DRUG THERAPY
  3. MYCOPHENOLATE MOFETIL. [Suspect]
     Active Substance: MYCOPHENOLATE MOFETIL
     Indication: IMMUNOSUPPRESSANT DRUG THERAPY
  4. MYCOPHENOLIC ACID. [Suspect]
     Active Substance: MYCOPHENOLIC ACID
     Indication: IMMUNOSUPPRESSANT DRUG THERAPY
  5. MYCOPHENOLIC ACID. [Suspect]
     Active Substance: MYCOPHENOLIC ACID
     Indication: ALLOGENIC STEM CELL TRANSPLANTATION
     Dosage: UNK
     Route: 065
  6. PREDNISONE. [Suspect]
     Active Substance: PREDNISONE
     Indication: STEM CELL TRANSPLANT
  7. MYCOPHENOLATE MOFETIL. [Suspect]
     Active Substance: MYCOPHENOLATE MOFETIL
     Indication: STEM CELL TRANSPLANT
     Dosage: UNK
     Route: 065

REACTIONS (8)
  - Graft versus host disease in gastrointestinal tract [Unknown]
  - Product use in unapproved indication [Unknown]
  - Graft versus host disease in eye [Unknown]
  - Aspergillus infection [Unknown]
  - Mycobacterium abscessus infection [Unknown]
  - Graft versus host disease in skin [Unknown]
  - Off label use [Unknown]
  - Moraxella infection [Unknown]
